FAERS Safety Report 15847712 (Version 2)
Quarter: 2025Q3

REPORT INFORMATION
  Report Type: Report from Study
  Country: EU (occurrence: EU)
  Receive Date: 20190121
  Receipt Date: 20250716
  Transmission Date: 20251021
  Serious: Yes (Death, Hospitalization, Other)
  Sender: AUROBINDO
  Company Number: EU-AUROBINDO-AUR-APL-2019-001645

PATIENT
  Age: 76 Year
  Sex: Female

DRUGS (6)
  1. VENLAFAXINE [Suspect]
     Active Substance: VENLAFAXINE HYDROCHLORIDE
     Indication: On and off phenomenon
     Dosage: 75 MILLIGRAM DAILY;
     Route: 065
  2. PRAMIPEXOLE [Suspect]
     Active Substance: PRAMIPEXOLE
     Indication: On and off phenomenon
     Dosage: 1.05 MILLIGRAM DAILY;
     Route: 065
  3. ZOLPIDEM [Suspect]
     Active Substance: ZOLPIDEM TARTRATE
     Indication: On and off phenomenon
     Dosage: 10 MILLIGRAM DAILY;
     Route: 065
  4. CLOZAPINE [Suspect]
     Active Substance: CLOZAPINE
     Indication: Hallucination, visual
     Dosage: 25 MILLIGRAM DAILY;
     Route: 065
  5. CARBIDOPA AND LEVODOPA [Suspect]
     Active Substance: CARBIDOPA\LEVODOPA
     Indication: On and off phenomenon
     Dosage: 1200 MILLIGRAM DAILY;
     Route: 065
  6. CARBIDOPA AND LEVODOPA [Suspect]
     Active Substance: CARBIDOPA\LEVODOPA
     Indication: Dyskinesia

REACTIONS (2)
  - Dyskinesia hyperpyrexia syndrome [Fatal]
  - Acute pulmonary oedema [Fatal]

NARRATIVE: CASE EVENT DATE: 20160701
